FAERS Safety Report 4429245-1 (Version None)
Quarter: 2004Q3

REPORT INFORMATION
  Report Type: 
  Country: None (occurrence: None)
  Receive Date: 20040817
  Receipt Date: 20040817
  Transmission Date: 20050211
  Serious: Yes (Life-Threatening, Hospitalization)
  Sender: FDA-Public Use
  Company Number: None

PATIENT
  Age: 20 Year
  Sex: Male

DRUGS (3)
  1. IRINOTECAN [Suspect]
     Indication: NEOPLASM
     Dosage: 340 MG Q 21 DAYS INTRAVENOUS
     Route: 042
     Dates: start: 20040331, end: 20040728
  2. EPIRUBICIN [Suspect]
     Indication: NEOPLASM
     Dosage: 50 MG Q 21 DAYS INTRAVENOUS
     Route: 042
     Dates: start: 20040331, end: 20040728
  3. MS CONTIN [Concomitant]

REACTIONS (3)
  - FEBRILE NEUTROPENIA [None]
  - HEADACHE [None]
  - MALAISE [None]
